FAERS Safety Report 10766455 (Version 1)
Quarter: 2015Q1

REPORT INFORMATION
  Report Type: Spontaneous
  Country: US (occurrence: US)
  Receive Date: 20150205
  Receipt Date: 20150205
  Transmission Date: 20150721
  Serious: Yes (Other)
  Sender: FDA-Public Use
  Company Number: US-PFIZER INC-2015048177

PATIENT
  Age: 40 Year
  Sex: Female
  Weight: 52 kg

DRUGS (1)
  1. DILANTIN [Suspect]
     Active Substance: PHENYTOIN
     Indication: SEIZURE
     Dosage: 400 MG TOTAL
     Dates: start: 2014

REACTIONS (7)
  - Blood triglycerides increased [Unknown]
  - Vomiting [Unknown]
  - Pancreatitis acute [Unknown]
  - Diarrhoea [Unknown]
  - Musculoskeletal chest pain [Unknown]
  - Anticonvulsant drug level decreased [Unknown]
  - Hepatic enzyme increased [Recovered/Resolved]
